FAERS Safety Report 4627676-8 (Version None)
Quarter: 2005Q2

REPORT INFORMATION
  Report Type: 
  Country: None (occurrence: None)
  Receive Date: 20050401
  Receipt Date: 20050324
  Transmission Date: 20051028
  Serious: Yes (Death)
  Sender: FDA-Public Use
  Company Number: 2005AL001187

PATIENT
  Age: 27 Year
  Sex: Male

DRUGS (7)
  1. SERAX [Suspect]
     Dosage: PO
     Route: 048
     Dates: start: 20040901, end: 20040901
  2. DIAZEPAM [Suspect]
     Dosage: PO
     Route: 048
     Dates: start: 20040901, end: 20040901
  3. COCAINE [Suspect]
     Dates: start: 20040901, end: 20040901
  4. HEROIN [Suspect]
     Dates: start: 20040901, end: 20040901
  5. METHADONE HCL [Suspect]
     Dosage: PO
     Dates: start: 20040901, end: 20040901
  6. MORPHINE [Suspect]
     Dates: start: 20040901, end: 20040901
  7. NORDAZEPAM [Suspect]
     Dosage: PO
     Route: 048
     Dates: start: 20040901, end: 20040901

REACTIONS (3)
  - COMPLETED SUICIDE [None]
  - DRUG ABUSER [None]
  - OVERDOSE [None]
